FAERS Safety Report 4881529-9 (Version None)
Quarter: 2006Q1

REPORT INFORMATION
  Report Type: 
  Country: None (occurrence: None)
  Receive Date: 20060116
  Receipt Date: 20060103
  Transmission Date: 20060701
  Serious: Yes (Hospitalization)
  Sender: FDA-Public Use
  Company Number: FR-GLAXOSMITHKLINE-B0405218A

PATIENT
  Age: 53 Year
  Sex: Female

DRUGS (5)
  1. LAMICTAL [Suspect]
     Indication: BIPOLAR DISORDER
     Dosage: 100MG TWICE PER DAY
     Route: 048
     Dates: start: 20050201, end: 20051214
  2. LEPTICUR [Suspect]
     Dosage: 1UNIT PER DAY
     Route: 048
     Dates: start: 20051209, end: 20051212
  3. LOXAPAC [Suspect]
     Dosage: 250MG PER DAY
     Route: 048
     Dates: start: 20051206, end: 20051212
  4. HALDOL [Suspect]
     Dosage: 300MG PER DAY
     Route: 048
     Dates: start: 20051208, end: 20051212
  5. TERCIAN CYAMEMAZINE [Concomitant]
     Route: 048

REACTIONS (7)
  - BLOOD CREATINE PHOSPHOKINASE INCREASED [None]
  - DERMATITIS BULLOUS [None]
  - PYREXIA [None]
  - RASH MACULAR [None]
  - RASH PRURITIC [None]
  - RASH VESICULAR [None]
  - URTICARIA [None]
